FAERS Safety Report 23541519 (Version 2)
Quarter: 2024Q1

REPORT INFORMATION
  Report Type: Spontaneous
  Country: JP (occurrence: JP)
  Receive Date: 20240219
  Receipt Date: 20240219
  Transmission Date: 20240410
  Serious: Yes (Other)
  Sender: FDA-Public Use
  Company Number: JP-SA-2024SA050655

PATIENT
  Age: 65 Year
  Sex: Male

DRUGS (3)
  1. AFLIBERCEPT [Suspect]
     Active Substance: AFLIBERCEPT
     Indication: Polypoidal choroidal vasculopathy
     Dosage: 14TH
     Route: 031
     Dates: start: 201912, end: 201912
  2. AFLIBERCEPT [Suspect]
     Active Substance: AFLIBERCEPT
     Indication: Neovascular age-related macular degeneration
     Dosage: 13 INJECTIONS
     Route: 031
     Dates: start: 2016
  3. AFLIBERCEPT [Suspect]
     Active Substance: AFLIBERCEPT
     Dosage: 15TH
     Route: 031
     Dates: start: 202003, end: 202003

REACTIONS (15)
  - Non-infectious endophthalmitis [Recovering/Resolving]
  - Vitreous floaters [Recovering/Resolving]
  - Vision blurred [Recovering/Resolving]
  - Eye pain [Recovering/Resolving]
  - Conjunctival hyperaemia [Recovering/Resolving]
  - Corneal oedema [Recovering/Resolving]
  - Keratic precipitates [Recovering/Resolving]
  - Vitreous opacities [Recovering/Resolving]
  - Corneal striae [Recovering/Resolving]
  - Visual acuity reduced [Recovering/Resolving]
  - Intraocular pressure increased [Recovering/Resolving]
  - Abnormal sensation in eye [Recovering/Resolving]
  - Vitritis [Recovered/Resolved]
  - Anterior chamber inflammation [Recovered/Resolved]
  - Immunisation reaction [Unknown]

NARRATIVE: CASE EVENT DATE: 20200101
